FAERS Safety Report 5415387-0 (Version None)
Quarter: 2007Q3

REPORT INFORMATION
  Report Type: 
  Country: None (occurrence: None)
  Receive Date: 20070813
  Receipt Date: 20070813
  Transmission Date: 20080115
  Serious: Yes (Life-Threatening)
  Sender: FDA-Public Use
  Company Number: None

PATIENT
  Age: 46 Year
  Sex: Male

DRUGS (1)
  1. LORAZEPAM [Suspect]
     Dosage: 20 MG /HOURS IV
     Route: 042
     Dates: start: 20070605, end: 20070607

REACTIONS (1)
  - ACUTE RESPIRATORY FAILURE [None]
